FAERS Safety Report 23517138 (Version 4)
Quarter: 2024Q2

REPORT INFORMATION
  Report Type: Other
  Country: CA (occurrence: None)
  Receive Date: 20240213
  Receipt Date: 20240529
  Transmission Date: 20240716
  Serious: Yes (Other)
  Sender: FDA-Public Use
  Company Number: CA-ROCHE-3506415

PATIENT
  Age: 69 Year
  Sex: Male
  Weight: 83 kg

DRUGS (12)
  1. ACTEMRA [Suspect]
     Active Substance: TOCILIZUMAB
     Indication: Rheumatoid arthritis
     Dosage: DRUG DOSE FIRST ADMINISTERED IS 324 MG MILLIGRAM(S)
     Route: 042
     Dates: start: 20231017, end: 20231017
  2. ACTEMRA [Suspect]
     Active Substance: TOCILIZUMAB
     Route: 042
     Dates: start: 20231115
  3. ASPIRIN [Concomitant]
     Active Substance: ASPIRIN
  4. BISOPROLOL [Concomitant]
     Active Substance: BISOPROLOL\BISOPROLOL FUMARATE
  5. INVOKANA [Concomitant]
     Active Substance: CANAGLIFLOZIN
  6. METFORMIN [Concomitant]
     Active Substance: METFORMIN HYDROCHLORIDE
  7. OMEGA 3 [Concomitant]
     Active Substance: CAPSAICIN
  8. OMEPRAZOLE [Concomitant]
     Active Substance: DONEPEZIL HYDROCHLORIDE\OMEPRAZOLE\OMEPRAZOLE MAGNESIUM
  9. ROSUVASTATIN [Concomitant]
     Active Substance: ROSUVASTATIN
  10. SITAGLIPTIN [Concomitant]
     Active Substance: SITAGLIPTIN
  11. SULFASALAZINE [Concomitant]
     Active Substance: SULFASALAZINE
  12. VITAMIN D3 [Concomitant]
     Active Substance: CHOLECALCIFEROL

REACTIONS (1)
  - Vocal cord disorder [Recovering/Resolving]

NARRATIVE: CASE EVENT DATE: 20240215
